FAERS Safety Report 20729854 (Version 1)
Quarter: 2022Q2

REPORT INFORMATION
  Report Type: Spontaneous
  Country: US (occurrence: None)
  Receive Date: 20220419
  Receipt Date: 20220419
  Transmission Date: 20220721
  Serious: No
  Sender: FDA-Public Use
  Company Number: None

PATIENT
  Age: 44 Year
  Sex: Female
  Weight: 60.75 kg

DRUGS (3)
  1. PAXLOVID [Suspect]
     Active Substance: NIRMATRELVIR\RITONAVIR
     Indication: COVID-19
     Dosage: FREQUENCY : TWICE A DAY;?
     Route: 048
     Dates: start: 20220405, end: 20220409
  2. XARELTO [Concomitant]
     Active Substance: RIVAROXABAN
     Dates: start: 20220407, end: 20220419
  3. LEVOTHYROXINE [Concomitant]
     Active Substance: LEVOTHYROXINE
     Dates: start: 20200106, end: 20220419

REACTIONS (5)
  - Rhinitis [None]
  - Sinusitis [None]
  - COVID-19 [None]
  - Condition aggravated [None]
  - Decreased immune responsiveness [None]

NARRATIVE: CASE EVENT DATE: 20220418
